FAERS Safety Report 11789677 (Version 1)
Quarter: 2015Q4

REPORT INFORMATION
  Report Type: Spontaneous
  Country: US (occurrence: None)
  Receive Date: 20151130
  Receipt Date: 20151130
  Transmission Date: 20160305
  Serious: Yes (Hospitalization)
  Sender: FDA-Public Use
  Company Number: None

PATIENT
  Age: 64 Year
  Sex: Female
  Weight: 72 kg

DRUGS (2)
  1. CARBOPLATIN. [Suspect]
     Active Substance: CARBOPLATIN
     Dates: end: 20151021
  2. ETOPOSIDE (VP-16) [Suspect]
     Active Substance: ETOPOSIDE
     Dosage: 185 MG ON DAYS 1, 2, AND 3
     Dates: end: 20151023

REACTIONS (4)
  - Febrile neutropenia [None]
  - Chills [None]
  - Sepsis [None]
  - Device related infection [None]

NARRATIVE: CASE EVENT DATE: 20151110
